FAERS Safety Report 25823837 (Version 1)
Quarter: 2025Q3

REPORT INFORMATION
  Report Type: Report from Study
  Country: CA (occurrence: CA)
  Receive Date: 20250919
  Receipt Date: 20250919
  Transmission Date: 20251021
  Serious: Yes (Life-Threatening, Hospitalization, Disabling, Other)
  Sender: BRISTOL-MYERS SQUIBB COMPANY
  Company Number: CA-BRISTOL-MYERS SQUIBB COMPANY-2025-087124

PATIENT
  Age: 58 Year
  Sex: Female
  Weight: 58.5 kg

DRUGS (16)
  1. OPDIVO [Suspect]
     Active Substance: NIVOLUMAB
     Indication: Ovarian cancer
     Dates: start: 20250618
  2. OPDIVO [Suspect]
     Active Substance: NIVOLUMAB
     Dates: start: 20250618
  3. OPDIVO [Suspect]
     Active Substance: NIVOLUMAB
     Dates: start: 20250618
  4. OPDIVO [Suspect]
     Active Substance: NIVOLUMAB
     Dates: start: 20250618
  5. OPDIVO [Suspect]
     Active Substance: NIVOLUMAB
  6. OPDIVO [Suspect]
     Active Substance: NIVOLUMAB
  7. OPDIVO [Suspect]
     Active Substance: NIVOLUMAB
     Dates: end: 20250826
  8. YERVOY [Suspect]
     Active Substance: IPILIMUMAB
     Indication: Ovarian cancer
     Dates: start: 20250618
  9. YERVOY [Suspect]
     Active Substance: IPILIMUMAB
     Dates: start: 20250618
  10. YERVOY [Suspect]
     Active Substance: IPILIMUMAB
  11. HYDROMORPHONE [Suspect]
     Active Substance: HYDROMORPHONE
     Indication: Abdominal pain
  12. SYNTHROID [Concomitant]
     Active Substance: LEVOTHYROXINE SODIUM
     Indication: Hypothyroidism
  13. FRAGMIN [Concomitant]
     Active Substance: DALTEPARIN SODIUM
     Indication: Deep vein thrombosis
     Dosage: 15000
  14. TYLENOL [Concomitant]
     Active Substance: ACETAMINOPHEN
     Indication: Product used for unknown indication
  15. VITAMIN D NOS [Concomitant]
     Active Substance: CHOLECALCIFEROL\ERGOCALCIFEROL
     Indication: Product used for unknown indication
     Dosage: 15000
  16. MAGNESIUM [Concomitant]
     Active Substance: MAGNESIUM
     Indication: Product used for unknown indication
     Dosage: 15000

REACTIONS (16)
  - Toxicity to various agents [Unknown]
  - Off label use [Unknown]
  - Fatigue [Recovering/Resolving]
  - Nausea [Recovering/Resolving]
  - Decreased appetite [Recovering/Resolving]
  - Weight decreased [Recovering/Resolving]
  - Dysgeusia [Recovering/Resolving]
  - Pain [Unknown]
  - Hypercalcaemia [Recovered/Resolved]
  - Oedema [Unknown]
  - Abdominal pain [Unknown]
  - Immune thrombocytopenia [Unknown]
  - Anaemia [Unknown]
  - Cardiac failure [Unknown]
  - Cerebrovascular accident [Unknown]
  - Gastrointestinal haemorrhage [Unknown]

NARRATIVE: CASE EVENT DATE: 20250723
